FAERS Safety Report 25751311 (Version 1)
Quarter: 2025Q3

REPORT INFORMATION
  Report Type: Spontaneous
  Country: US (occurrence: None)
  Receive Date: 20250831
  Receipt Date: 20250831
  Transmission Date: 20251021
  Serious: Yes (Other)
  Sender: FDA-CTU
  Company Number: None

PATIENT
  Sex: Female

DRUGS (1)
  1. OTEZLA [Suspect]
     Active Substance: APREMILAST
     Indication: Psoriasis
     Dates: start: 20211021, end: 20250718

REACTIONS (4)
  - Drug ineffective [None]
  - Psoriasis [None]
  - Therapy cessation [None]
  - Arthritis [None]

NARRATIVE: CASE EVENT DATE: 20250801
